FAERS Safety Report 7550965-4 (Version None)
Quarter: 2011Q2

REPORT INFORMATION
  Report Type: 
  Country: None (occurrence: None)
  Receive Date: 20110616
  Receipt Date: 20110608
  Transmission Date: 20111010
  Serious: Yes (Other)
  Sender: FDA-Public Use
  Company Number: ES-ASTELLAS-2011US002885

PATIENT
  Age: 39 Year
  Sex: Male

DRUGS (3)
  1. AMBISOME [Suspect]
     Indication: PYREXIA
     Dosage: 210 MG, UID/QD
     Route: 042
     Dates: start: 20110430, end: 20110514
  2. IDARUBICIN HCL [Concomitant]
     Indication: ACUTE MYELOID LEUKAEMIA
     Dosage: 23 MG, UID/QD
     Route: 042
     Dates: start: 20110419, end: 20110421
  3. CITARABIN [Concomitant]
     Indication: ACUTE MYELOID LEUKAEMIA
     Dosage: 380 MG, UID/QD
     Route: 042
     Dates: start: 20110419, end: 20110425

REACTIONS (2)
  - HEPATITIS [None]
  - OFF LABEL USE [None]
